FAERS Safety Report 7265002-9 (Version None)
Quarter: 2011Q1

REPORT INFORMATION
  Report Type: 
  Country: None (occurrence: None)
  Receive Date: 20110131
  Receipt Date: 20101216
  Transmission Date: 20110831
  Serious: Yes (Other)
  Sender: FDA-Public Use
  Company Number: US-BAYER-201037616NA

PATIENT
  Sex: Female
  Weight: 56.236 kg

DRUGS (7)
  1. VICODIN [Concomitant]
     Dosage: UNK UNK, PRN
     Route: 048
     Dates: start: 20071201
  2. YASMIN [Suspect]
     Indication: ACNE
     Dosage: UNK
     Dates: start: 20060101, end: 20090101
  3. IBUPROFEN [Concomitant]
  4. LOESTRIN FE 1/20 [Concomitant]
     Dosage: UNK
     Dates: start: 20070801
  5. YAZ [Suspect]
     Indication: ACNE
     Dosage: UNK
     Dates: start: 20060101, end: 20090101
  6. ALBUTEROL [Concomitant]
  7. OCELLA [Suspect]
     Indication: ACNE
     Dosage: UNK
     Dates: start: 20060101, end: 20090101

REACTIONS (10)
  - ABDOMINAL PAIN UPPER [None]
  - PAIN [None]
  - DIARRHOEA [None]
  - ERUCTATION [None]
  - FLATULENCE [None]
  - BACK PAIN [None]
  - ABDOMINAL DISTENSION [None]
  - CHOLECYSTITIS CHRONIC [None]
  - ABDOMINAL PAIN [None]
  - FLANK PAIN [None]
